FAERS Safety Report 7462661-2 (Version None)
Quarter: 2011Q2

REPORT INFORMATION
  Report Type: 
  Country: None (occurrence: None)
  Receive Date: 20110506
  Receipt Date: 20110502
  Transmission Date: 20111010
  Serious: Yes (Other)
  Sender: FDA-Public Use
  Company Number: PHEH2010US00901

PATIENT
  Sex: Male
  Weight: 92.3 kg

DRUGS (40)
  1. AZITHROMYCIN [Concomitant]
  2. DIGOXIN [Concomitant]
  3. TRAMSULOSIN [Concomitant]
  4. MEGACE [Concomitant]
  5. AVODART [Concomitant]
     Dosage: 0.5 MG, QD
  6. ACETAMINOPHEN [Concomitant]
  7. SINGULAIR [Concomitant]
  8. AZACTAM [Concomitant]
  9. BACTRIM [Concomitant]
  10. SIMVASTATIN [Concomitant]
  11. KLOR-CON [Concomitant]
     Dosage: 20 MEQ, QD
  12. VITAMIN B-12 [Concomitant]
     Dosage: 100 MG, QD
  13. EXJADE [Suspect]
     Indication: PORPHYRIN METABOLISM DISORDER
     Dosage: 2000 MG, QD
     Route: 048
  14. EXJADE [Suspect]
     Dosage: 3500 MG, QD
     Route: 048
  15. MACROBID [Concomitant]
  16. AZTREONAM [Concomitant]
  17. LASIX [Concomitant]
     Dosage: 20 MG, QD
  18. LEVAQUIN [Concomitant]
  19. SPIRIVA [Concomitant]
  20. HYDROXYUREA [Concomitant]
     Dosage: 500 MG, QD
     Route: 048
  21. LOVAZA [Concomitant]
  22. PROVENTIL [Concomitant]
  23. OXYCODONE [Concomitant]
  24. FLUCONAZOLE [Concomitant]
  25. DILTIAZEM [Concomitant]
  26. METHOTREXATE [Concomitant]
     Dosage: 2.5 MG, THREE DOSES ONCE A WEEK
  27. ALBUTEROL [Concomitant]
  28. PERCOCET [Concomitant]
  29. MYCAMINE [Concomitant]
  30. MULTIVITAMIN ^LAPPE^ [Concomitant]
  31. AMIODARONE [Concomitant]
     Dosage: 200 MG, BID
  32. NYSTATIN [Concomitant]
  33. COUMADIN [Concomitant]
     Dosage: 1 MG, DAILY
     Route: 048
  34. TRICOR [Concomitant]
     Dosage: 145 MG, QD
  35. OMEGA-3 FATTY ACIDS [Concomitant]
  36. CARDIZEM [Concomitant]
     Dosage: 180 MG, QD
     Route: 048
  37. PROAIR HFA [Concomitant]
  38. CRESTOR [Concomitant]
  39. ZOCOR [Concomitant]
     Dosage: 20 MG, QD
  40. CORDARONE [Concomitant]

REACTIONS (3)
  - PNEUMONIA [None]
  - MALAISE [None]
  - MUSCLE SPASMS [None]
